FAERS Safety Report 7747384-4 (Version None)
Quarter: 2011Q3

REPORT INFORMATION
  Report Type: 
  Country: None (occurrence: None)
  Receive Date: 20110913
  Receipt Date: 20110907
  Transmission Date: 20111222
  Serious: Yes (Other)
  Sender: FDA-Public Use
  Company Number: GB-VIIV HEALTHCARE LIMITED-A0944148A

PATIENT
  Age: 35 Year
  Sex: Female

DRUGS (2)
  1. NEVIRAPINE [Suspect]
     Indication: ANTIVIRAL TREATMENT
     Dosage: 200MGD PER DAY
     Route: 048
     Dates: start: 20030219
  2. EPZICOM [Suspect]
     Indication: ANTIVIRAL TREATMENT
     Dosage: 1TAB PER DAY
     Route: 048
     Dates: start: 20061017

REACTIONS (2)
  - MATERNAL EXPOSURE DURING PREGNANCY [None]
  - ABORTION SPONTANEOUS [None]
